FAERS Safety Report 14615365 (Version 4)
Quarter: 2019Q1

REPORT INFORMATION
  Report Type: Report from Study
  Country: JP (occurrence: JP)
  Receive Date: 20180308
  Receipt Date: 20190322
  Transmission Date: 20190417
  Serious: Yes (Death, Other)
  Sender: FDA-Public Use
  Company Number: JP-TAKEDA-2017TJP019872

PATIENT
  Age: 76 Year
  Sex: Male
  Weight: 40 kg

DRUGS (11)
  1. LENALIDOMIDE [Suspect]
     Active Substance: LENALIDOMIDE
     Dosage: 5 MG, QOD
     Route: 048
     Dates: start: 20171122, end: 20171128
  2. IXAZOMIB [Suspect]
     Active Substance: IXAZOMIB
     Dosage: 2.3 MG, 1/WEEK
     Route: 048
     Dates: start: 20171206, end: 20171206
  3. LENALIDOMIDE [Suspect]
     Active Substance: LENALIDOMIDE
     Dosage: 5 MG, QD
     Route: 048
     Dates: start: 20171206, end: 20171207
  4. SULFAMETHOXAZOLE W/TRIMETHOPRIM [Concomitant]
     Active Substance: SULFAMETHOXAZOLE\TRIMETHOPRIM
     Indication: PROPHYLAXIS
     Dosage: UNK
     Route: 065
     Dates: end: 20171207
  5. LENALIDOMIDE [Suspect]
     Active Substance: LENALIDOMIDE
     Dosage: 5 MG, QD
     Route: 048
     Dates: start: 20171018, end: 20171031
  6. IXAZOMIB [Suspect]
     Active Substance: IXAZOMIB
     Dosage: 3 MG, 1/WEEK
     Route: 048
     Dates: start: 20171108, end: 20171122
  7. DEXAMETHASONE. [Suspect]
     Active Substance: DEXAMETHASONE
     Indication: PLASMA CELL MYELOMA
     Dosage: 20 MG, 1/WEEK
     Route: 048
     Dates: start: 20170726, end: 20171206
  8. ACICLOVIR [Concomitant]
     Active Substance: ACYCLOVIR
     Indication: PROPHYLAXIS
     Dosage: UNK
     Route: 065
     Dates: end: 20171207
  9. IXAZOMIB [Suspect]
     Active Substance: IXAZOMIB
     Indication: PLASMA CELL MYELOMA
     Dosage: 3 MG, 1/WEEK
     Route: 048
     Dates: start: 20170726, end: 20171025
  10. LENALIDOMIDE [Suspect]
     Active Substance: LENALIDOMIDE
     Dosage: 5 MG, QD
     Route: 048
     Dates: start: 20171108, end: 20171121
  11. LENALIDOMIDE [Suspect]
     Active Substance: LENALIDOMIDE
     Indication: PLASMA CELL MYELOMA
     Dosage: 10 MG, QD
     Route: 048
     Dates: start: 20170726, end: 20171010

REACTIONS (10)
  - Red blood cell count decreased [Recovered/Resolved]
  - Thrombocytopenia [Recovering/Resolving]
  - Condition aggravated [Recovered/Resolved]
  - Thrombocytopenia [Recovering/Resolving]
  - Thrombocytopenia [Recovering/Resolving]
  - Thrombocytopenia [Recovering/Resolving]
  - Plasma cell myeloma [Fatal]
  - Condition aggravated [Recovering/Resolving]
  - Thrombocytopenia [Recovering/Resolving]
  - Red blood cell count decreased [Recovering/Resolving]

NARRATIVE: CASE EVENT DATE: 20170814
